FAERS Safety Report 12484785 (Version 1)
Quarter: 2016Q2

REPORT INFORMATION
  Report Type: Spontaneous
  Country: US (occurrence: None)
  Receive Date: 20160620
  Receipt Date: 20160620
  Transmission Date: 20160815
  Serious: No
  Sender: FDA-Public Use
  Company Number: None

PATIENT
  Age: 40 Year
  Sex: Female
  Weight: 63.5 kg

DRUGS (11)
  1. TROKENDI [Concomitant]
     Active Substance: TOPIRAMATE
  2. ORPHENADRINE [Concomitant]
     Active Substance: ORPHENADRINE
  3. TYZANIDINE [Concomitant]
  4. SYSTOLIC [Concomitant]
  5. ZECUITY [Suspect]
     Active Substance: SUMATRIPTAN SUCCINATE
     Indication: MIGRAINE
     Dosage: AS NEEDED APPLIED AS MEDICATED PATCH TO SKIN
     Dates: start: 20150901, end: 20160501
  6. QUARTETTE [Concomitant]
     Active Substance: ETHINYL ESTRADIOL\LEVONORGESTREL
  7. VITAMIN B12 [Concomitant]
     Active Substance: CYANOCOBALAMIN
  8. MAGNESIUM [Concomitant]
     Active Substance: MAGNESIUM
  9. DICLONFINE [Concomitant]
  10. FOLIC ACID. [Concomitant]
     Active Substance: FOLIC ACID
  11. VITAMIN D [Concomitant]
     Active Substance: CHOLECALCIFEROL

REACTIONS (4)
  - Application site erythema [None]
  - Paraesthesia [None]
  - Application site pain [None]
  - Application site pruritus [None]
